FAERS Safety Report 4956154-1 (Version None)
Quarter: 2006Q1

REPORT INFORMATION
  Report Type: 
  Country: None (occurrence: None)
  Receive Date: 20060201
  Receipt Date: 20051122
  Transmission Date: 20060701
  Serious: No
  Sender: FDA-Public Use
  Company Number: 2005PV004756

PATIENT
  Sex: Male
  Weight: 90.7194 kg

DRUGS (2)
  1. BYETTA [Suspect]
     Indication: DIABETES MELLITUS NON-INSULIN-DEPENDENT
     Dosage: 5 MCG; BID; SC
     Route: 058
     Dates: start: 20051021
  2. AVANDAMET [Concomitant]

REACTIONS (4)
  - ERYTHEMA [None]
  - GENERALISED ERYTHEMA [None]
  - PRURITUS GENERALISED [None]
  - RASH GENERALISED [None]
